FAERS Safety Report 22956303 (Version 2)
Quarter: 2024Q1

REPORT INFORMATION
  Report Type: Spontaneous
  Country: IT (occurrence: IT)
  Receive Date: 20230919
  Receipt Date: 20240116
  Transmission Date: 20240410
  Serious: Yes (Other)
  Sender: FDA-Public Use
  Company Number: IT-002147023-NVSC2023IT042584

PATIENT
  Age: 68 Year
  Sex: Male

DRUGS (4)
  1. TACROLIMUS [Suspect]
     Active Substance: TACROLIMUS
     Indication: Product used for unknown indication
     Dosage: UNK (LEVEL TARGET 5-7 NG /ML)
     Route: 065
  2. MYCOPHENOLATE MOFETIL [Suspect]
     Active Substance: MYCOPHENOLATE MOFETIL
     Indication: Acute kidney injury
     Dosage: 1000 MILLIGRAM, QD (500 MG, BID)
     Route: 065
  3. PREDNISONE [Suspect]
     Active Substance: PREDNISONE
     Indication: Product used for unknown indication
     Dosage: 5 MILLIGRAM
     Route: 065
  4. MEDROXYPROGESTERONE ACETATE [Suspect]
     Active Substance: MEDROXYPROGESTERONE ACETATE
     Indication: Product used for unknown indication
     Dosage: 720 MILLIGRAM, QD, 360 MG, BID
     Route: 065

REACTIONS (8)
  - Glomerulonephritis [Unknown]
  - Myocardial ischaemia [Unknown]
  - Blood creatinine increased [Unknown]
  - Renal impairment [Unknown]
  - Proteinuria [Unknown]
  - Symptom recurrence [Unknown]
  - Drug intolerance [Unknown]
  - Infection [Unknown]

NARRATIVE: CASE EVENT DATE: 20221201
